FAERS Safety Report 5999131-4 (Version None)
Quarter: 2008Q4

REPORT INFORMATION
  Report Type: 
  Country: None (occurrence: None)
  Receive Date: 20081215
  Receipt Date: 20081214
  Transmission Date: 20090506
  Serious: Yes (Hospitalization, Other)
  Sender: FDA-Public Use
  Company Number: US-PFIZER INC-2008088555

PATIENT
  Sex: Female
  Weight: 59 kg

DRUGS (10)
  1. CELEBREX [Suspect]
     Indication: ARTHRITIS
  2. CELEBREX [Suspect]
     Indication: SPINAL OSTEOARTHRITIS
  3. FLEXERIL [Concomitant]
  4. REGLAN [Concomitant]
  5. ALENDRONATE SODIUM [Concomitant]
  6. LIDODERM [Concomitant]
  7. COLACE [Concomitant]
  8. OMEPRAZOLE [Concomitant]
  9. VALTREX [Concomitant]
  10. LUNESTA [Concomitant]

REACTIONS (5)
  - CARDIAC DISORDER [None]
  - CEREBROVASCULAR ACCIDENT [None]
  - DIABETES MELLITUS [None]
  - MYOCARDIAL INFARCTION [None]
  - OEDEMA PERIPHERAL [None]
